FAERS Safety Report 9526719 (Version 2)
Quarter: 2013Q3

REPORT INFORMATION
  Report Type: Spontaneous
  Country: US (occurrence: US)
  Receive Date: 20130916
  Receipt Date: 20130920
  Transmission Date: 20140515
  Serious: Yes (Hospitalization)
  Sender: FDA-Public Use
  Company Number: US-GILEAD-2013-0083425

PATIENT
  Sex: Female

DRUGS (5)
  1. LETAIRIS [Suspect]
     Indication: PULMONARY HYPERTENSION
     Dosage: 5 MG, QD
     Route: 048
     Dates: start: 20130820, end: 20130823
  2. LETAIRIS [Suspect]
     Indication: PULMONARY EMBOLISM
  3. LETAIRIS [Suspect]
     Indication: TRANSFUSION
  4. LETAIRIS [Suspect]
     Indication: COAGULOPATHY
  5. REVATIO [Concomitant]

REACTIONS (1)
  - Liver disorder [Unknown]
